FAERS Safety Report 15620940 (Version 1)
Quarter: 2018Q4

REPORT INFORMATION
  Report Type: Spontaneous
  Country: US (occurrence: US)
  Receive Date: 20181115
  Receipt Date: 20181115
  Transmission Date: 20190205
  Serious: Yes (Hospitalization)
  Sender: FDA-Public Use
  Company Number: US-PFIZER INC-2018456280

PATIENT
  Age: 64 Year
  Sex: Female
  Weight: 116.1 kg

DRUGS (1)
  1. GABAPENTIN. [Suspect]
     Active Substance: GABAPENTIN
     Dosage: 300 MG, 1X/DAY (AT BEDTIME)
     Route: 048

REACTIONS (5)
  - Weight increased [Not Recovered/Not Resolved]
  - Ear infection [Not Recovered/Not Resolved]
  - Depression [Not Recovered/Not Resolved]
  - Pruritus [Not Recovered/Not Resolved]
  - Viral infection [Not Recovered/Not Resolved]

NARRATIVE: CASE EVENT DATE: 2018
